FAERS Safety Report 14495254 (Version 1)
Quarter: 2018Q1

REPORT INFORMATION
  Report Type: Spontaneous
  Country: US (occurrence: US)
  Receive Date: 20180206
  Receipt Date: 20180206
  Transmission Date: 20180509
  Serious: No
  Sender: FDA-Public Use
  Company Number: US-SMITH AND NEPHEW, INC-2017SMT00105

PATIENT
  Sex: Male
  Weight: 142.4 kg

DRUGS (5)
  1. WARFARIN [Concomitant]
     Active Substance: WARFARIN
     Dosage: 10 MG, 1X/DAY
     Dates: start: 19980920
  2. HYDROCHLOROTHIAZIDE. [Concomitant]
     Active Substance: HYDROCHLOROTHIAZIDE
     Dosage: 12.5 MG, 1X/DAY
     Dates: start: 199812
  3. REGRANEX [Suspect]
     Active Substance: BECAPLERMIN
     Indication: DIABETIC ULCER
     Dosage: UNK, 1X/DAY FOR 12 HOURS ON AND 12 HOURS OFF
     Route: 061
     Dates: start: 20170204, end: 20170301
  4. TYLENOL [Concomitant]
     Active Substance: ACETAMINOPHEN
     Indication: PAIN
     Dosage: 200 MG, 4X/DAY
     Dates: start: 201610
  5. UNSPECIFIED INSULIN PILL [Concomitant]
     Indication: DIABETES MELLITUS
     Dosage: UNK
     Dates: start: 201609

REACTIONS (7)
  - Application site rash [Recovering/Resolving]
  - Wound secretion [Recovered/Resolved]
  - Sensory disturbance [Recovered/Resolved]
  - Application site pain [Unknown]
  - Insomnia [Recovered/Resolved]
  - Application site erythema [Recovering/Resolving]
  - Drug effect incomplete [Not Recovered/Not Resolved]

NARRATIVE: CASE EVENT DATE: 2017
